FAERS Safety Report 25546269 (Version 1)
Quarter: 2025Q3

REPORT INFORMATION
  Report Type: Spontaneous
  Country: GB (occurrence: GB)
  Receive Date: 20250713
  Receipt Date: 20250713
  Transmission Date: 20251020
  Serious: Yes (Other)
  Sender: DR REDDYS
  Company Number: None

PATIENT
  Age: 32 Year
  Sex: Female

DRUGS (19)
  1. MONTELUKAST [Suspect]
     Active Substance: MONTELUKAST
     Indication: Asthma
     Route: 065
  2. PREDNISOLONE [Suspect]
     Active Substance: PREDNISOLONE
     Indication: Asthma
     Route: 048
  3. PREDNISOLONE [Suspect]
     Active Substance: PREDNISOLONE
     Dosage: 5 MILLIGRAM DAILY;
     Route: 048
  4. PREDNISOLONE [Suspect]
     Active Substance: PREDNISOLONE
     Route: 048
  5. PREDNISOLONE [Suspect]
     Active Substance: PREDNISOLONE
     Dosage: 20 MILLIGRAM DAILY;
     Route: 048
  6. PREDNISOLONE [Suspect]
     Active Substance: PREDNISOLONE
     Dosage: 40 MILLIGRAM DAILY;
     Route: 048
  7. PREDNISOLONE [Suspect]
     Active Substance: PREDNISOLONE
     Dosage: 20 MILLIGRAM DAILY; DOSE AGAIN INCREASED
     Route: 048
  8. BUDESONIDE\FORMOTEROL [Suspect]
     Active Substance: BUDESONIDE\FORMOTEROL
     Indication: Asthma
     Dosage: .5 DOSAGE FORMS DAILY; BUDESONIDE/FORMOTEROL 400 MICROG/12 MICROG, DRY POWDER INHALER, 1 DOSAGE FORM
     Route: 055
  9. BUDESONIDE\FORMOTEROL [Suspect]
     Active Substance: BUDESONIDE\FORMOTEROL
     Dosage: 1 DOSAGE FORM
     Route: 055
  10. FLUTICASONE\FORMOTEROL [Suspect]
     Active Substance: FLUTICASONE\FORMOTEROL
     Indication: Asthma
     Dosage: 4 DOSAGE FORMS DAILY; PRESSURISED METERED DOSE INHALER 2PUFFS TWICE DAILY THROUGH A SPACER; 1 DOSAGE
     Route: 055
  11. FLUTICASONE\FORMOTEROL [Suspect]
     Active Substance: FLUTICASONE\FORMOTEROL
     Dosage: 4 DOSAGE FORM
     Route: 055
  12. RESLIZUMAB [Suspect]
     Active Substance: RESLIZUMAB
     Indication: Asthma
     Route: 065
  13. MOMETASONE [Suspect]
     Active Substance: MOMETASONE
     Indication: Chronic rhinosinusitis with nasal polyps
     Route: 045
  14. MOMETASONE [Suspect]
     Active Substance: MOMETASONE
     Indication: Rhinitis allergic
  15. MOMETASONE [Suspect]
     Active Substance: MOMETASONE
  16. MEPOLIZUMAB [Suspect]
     Active Substance: MEPOLIZUMAB
     Indication: Asthma
     Route: 065
  17. TIOTROPIUM [Concomitant]
     Active Substance: TIOTROPIUM
     Indication: Asthma
     Route: 055
  18. ALBUTEROL [Concomitant]
     Active Substance: ALBUTEROL
     Indication: Asthma
     Route: 055
  19. OMEPRAZOLE [Concomitant]
     Active Substance: OMEPRAZOLE
     Indication: Gastrooesophageal reflux disease

REACTIONS (10)
  - Alopecia [Recovering/Resolving]
  - Asthma [Recovering/Resolving]
  - Oropharyngeal pain [Unknown]
  - Adrenal suppression [Unknown]
  - Myalgia [Unknown]
  - Headache [Unknown]
  - Urticaria [Unknown]
  - Drug ineffective [Unknown]
  - Paradoxical drug reaction [Unknown]
  - Asthma [Recovering/Resolving]
